FAERS Safety Report 4422888-0 (Version None)
Quarter: 2004Q3

REPORT INFORMATION
  Report Type: 
  Country: None (occurrence: None)
  Receive Date: 20040811
  Receipt Date: 20040802
  Transmission Date: 20050211
  Serious: Yes (Hospitalization)
  Sender: FDA-Public Use
  Company Number: US-JNJFOC-20040403050

PATIENT
  Age: 60 Year
  Sex: Female
  Weight: 56.7 kg

DRUGS (2)
  1. DURAGESIC [Suspect]
     Route: 062
  2. OXYCODONE HCL [Suspect]
     Route: 049

REACTIONS (5)
  - FEELING HOT [None]
  - HYPERSENSITIVITY [None]
  - MEDICAL DEVICE COMPLICATION [None]
  - SELF-MEDICATION [None]
  - TREATMENT NONCOMPLIANCE [None]
